FAERS Safety Report 8285354 (Version 2)
Quarter: 2012Q4

REPORT INFORMATION
  Report Type: 
  Country: DE (occurrence: IL)
  Receive Date: 20111213
  Receipt Date: 20120910
  Transmission Date: 20130627
  Serious: Yes (Other)
  Sender: FDA-Public Use
  Company Number: IL-BRISTOL-MYERS SQUIBB COMPANY-16275257

PATIENT
  Age: 42 Year
  Sex: Male

DRUGS (3)
  1. ERBITUX SOLN FOR INF 5MG/ML [Suspect]
     Indication: HEAD AND NECK CANCER METASTATIC
     Dosage: NO of inf:5
     Route: 042
     Dates: start: 201105
  2. CISPLATIN [Concomitant]
     Indication: HEAD AND NECK CANCER METASTATIC
  3. 5-FLUOROURACIL [Concomitant]
     Indication: HEAD AND NECK CANCER METASTATIC

REACTIONS (3)
  - Asthenia [Recovering/Resolving]
  - Hypoaesthesia [Recovering/Resolving]
  - Pain in extremity [Recovering/Resolving]
